FAERS Safety Report 6669133-3 (Version None)
Quarter: 2010Q2

REPORT INFORMATION
  Report Type: 
  Country: None (occurrence: None)
  Receive Date: 20100406
  Receipt Date: 20100329
  Transmission Date: 20101027
  Serious: Yes (Hospitalization)
  Sender: FDA-Public Use
  Company Number: US-AMGEN-US378735

PATIENT
  Age: 53 Year
  Sex: Female
  Weight: 66.4 kg

DRUGS (3)
  1. PANITUMUMAB [Suspect]
     Indication: PANCREATIC CARCINOMA
     Route: 042
     Dates: start: 20091102, end: 20091102
  2. XELODA [Suspect]
     Route: 048
     Dates: start: 20091102, end: 20091130
  3. RADIATION THERAPY [Suspect]
     Dates: start: 20091102, end: 20091127

REACTIONS (6)
  - DEHYDRATION [None]
  - HYPOTENSION [None]
  - NAUSEA [None]
  - PALMAR-PLANTAR ERYTHRODYSAESTHESIA SYNDROME [None]
  - RENAL FAILURE [None]
  - VOMITING [None]
